FAERS Safety Report 8288687-7 (Version None)
Quarter: 2012Q2

REPORT INFORMATION
  Report Type: 
  Country: None (occurrence: None)
  Receive Date: 20120417
  Receipt Date: 20120403
  Transmission Date: 20120825
  Serious: Yes (Other)
  Sender: FDA-Public Use
  Company Number: IT-AMGEN-ITASP2012022462

PATIENT
  Age: 62 Year
  Sex: Female

DRUGS (8)
  1. ENBREL [Suspect]
     Indication: RHEUMATOID ARTHRITIS
     Dosage: 50 MG, WEEKLY
     Route: 058
     Dates: start: 20050801, end: 20120102
  2. CARDURA [Concomitant]
     Dosage: UNK
  3. METHOTREXATE [Suspect]
     Indication: RHEUMATOID ARTHRITIS
     Dosage: 10 MG, WEEKLY
     Route: 030
     Dates: start: 20040101, end: 20120102
  4. RATACAND [Concomitant]
     Dosage: UNK
  5. LANSOPRAZOLE [Concomitant]
     Dosage: UNK
  6. METFORMIN HCL [Concomitant]
     Dosage: UNK
  7. LEVOTHYROXINE SODIUM [Concomitant]
     Dosage: UNK
  8. DEFLAN [Concomitant]
     Dosage: UNK

REACTIONS (3)
  - SKIN EXFOLIATION [None]
  - PRURITUS [None]
  - SKIN REACTION [None]
